FAERS Safety Report 5759535-1 (Version None)
Quarter: 2008Q2

REPORT INFORMATION
  Report Type: 
  Country: None (occurrence: None)
  Receive Date: 20080605
  Receipt Date: 20080527
  Transmission Date: 20081010
  Serious: Yes (Hospitalization)
  Sender: FDA-Public Use
  Company Number: US-TYCO HEALTHCARE/MALLINCKRODT-T200800899

PATIENT

DRUGS (5)
  1. CONRAY [Suspect]
     Indication: SPINAL MYELOGRAM
     Dosage: 11 ML (CC), SINGLE
     Route: 037
     Dates: start: 20070723, end: 20070723
  2. VERSED [Suspect]
     Indication: MUSCLE SPASMS
     Dosage: 4 MG, HR
     Route: 041
     Dates: start: 20070723, end: 20070724
  3. TERAZOSIN HCL [Concomitant]
  4. PRAVACHOL [Concomitant]
     Dosage: 20 MG, QHS
  5. PRILOSEC [Concomitant]
     Dosage: 20 MG, QD

REACTIONS (19)
  - ASTHENIA [None]
  - BLADDER DISORDER [None]
  - COLD SWEAT [None]
  - CONFUSIONAL STATE [None]
  - CONSTIPATION [None]
  - FLUSHING [None]
  - HEADACHE [None]
  - HYPOAESTHESIA [None]
  - MEDICATION ERROR [None]
  - MUSCLE SPASMS [None]
  - NAUSEA [None]
  - PAIN IN EXTREMITY [None]
  - PARAESTHESIA [None]
  - RHABDOMYOLYSIS [None]
  - STRESS [None]
  - TACHYCARDIA [None]
  - TREMOR [None]
  - URINARY RETENTION [None]
  - WHITE BLOOD CELL COUNT INCREASED [None]
